FAERS Safety Report 22915312 (Version 12)
Quarter: 2024Q1

REPORT INFORMATION
  Report Type: Report from Study
  Country: AT (occurrence: AT)
  Receive Date: 20230907
  Receipt Date: 20240327
  Transmission Date: 20240409
  Serious: Yes (Hospitalization, Other)
  Sender: FDA-Public Use
  Company Number: AT-ABBVIE-5396172

PATIENT
  Sex: Female
  Weight: 67 kg

DRUGS (66)
  1. VENETOCLAX [Suspect]
     Active Substance: VENETOCLAX
     Indication: Acute myeloid leukaemia
     Dosage: RAMP-UP PHASE
     Route: 048
     Dates: start: 20230827, end: 20230914
  2. VENETOCLAX [Suspect]
     Active Substance: VENETOCLAX
     Indication: Acute myeloid leukaemia
     Dosage: STANDARD DOSE
     Route: 048
     Dates: start: 20230621, end: 20230621
  3. VENETOCLAX [Suspect]
     Active Substance: VENETOCLAX
     Indication: Acute myeloid leukaemia
     Dosage: STANDARD DOSE
     Route: 048
     Dates: start: 20230622, end: 20230716
  4. VENETOCLAX [Suspect]
     Active Substance: VENETOCLAX
     Indication: Acute myeloid leukaemia
     Route: 048
     Dates: start: 20230717, end: 20230805
  5. VENETOCLAX [Suspect]
     Active Substance: VENETOCLAX
     Indication: Acute myeloid leukaemia
     Dosage: RAMP-UP PHASE
     Route: 048
     Dates: start: 20230619, end: 20230619
  6. VENETOCLAX [Suspect]
     Active Substance: VENETOCLAX
     Indication: Acute myeloid leukaemia
     Dosage: RAMP-UP PHASE
     Route: 048
     Dates: start: 20230620, end: 20230620
  7. VENETOCLAX [Suspect]
     Active Substance: VENETOCLAX
     Indication: Acute myeloid leukaemia
     Dosage: RAMP-UP PHASE
     Route: 048
     Dates: start: 20230826, end: 20230826
  8. VENETOCLAX [Suspect]
     Active Substance: VENETOCLAX
     Indication: Acute myeloid leukaemia
     Dosage: HEMATOLOGIC AE/SAE
     Route: 048
     Dates: start: 20231023, end: 20231106
  9. VENETOCLAX [Suspect]
     Active Substance: VENETOCLAX
     Indication: Acute myeloid leukaemia
     Dosage: HEMATOLOGIC AE/SAE
     Route: 048
     Dates: start: 20230925, end: 20231002
  10. VENETOCLAX [Suspect]
     Active Substance: VENETOCLAX
     Indication: Acute myeloid leukaemia
     Dosage: HEMATOLOGIC AE/SAE
     Route: 048
     Dates: start: 20231120, end: 20231203
  11. VENETOCLAX [Suspect]
     Active Substance: VENETOCLAX
     Indication: Acute myeloid leukaemia
     Dosage: HEMATOLOGIC AE/SAE
     Route: 048
     Dates: start: 20240115, end: 20240129
  12. VENETOCLAX [Suspect]
     Active Substance: VENETOCLAX
     Indication: Acute myeloid leukaemia
     Dosage: HEMATOLOGIC AE/SAE
     Route: 048
     Dates: start: 20231218, end: 20231231
  13. VENETOCLAX [Suspect]
     Active Substance: VENETOCLAX
     Indication: Acute myeloid leukaemia
     Route: 048
     Dates: start: 20240212, end: 20240225
  14. VENETOCLAX [Suspect]
     Active Substance: VENETOCLAX
     Indication: Acute myeloid leukaemia
     Dosage: 0 MG
     Route: 048
     Dates: start: 20240226, end: 20240317
  15. VENETOCLAX [Suspect]
     Active Substance: VENETOCLAX
     Indication: Acute myeloid leukaemia
     Dosage: 0 MG
     Route: 048
     Dates: start: 20240130, end: 20240211
  16. VENETOCLAX [Suspect]
     Active Substance: VENETOCLAX
     Indication: Acute myeloid leukaemia
     Dosage: 0 MG
     Route: 048
     Dates: start: 20240101, end: 20240114
  17. VENETOCLAX [Suspect]
     Active Substance: VENETOCLAX
     Indication: Acute myeloid leukaemia
     Dosage: 0 MG
     Route: 048
     Dates: start: 20231204, end: 20231217
  18. VENETOCLAX [Suspect]
     Active Substance: VENETOCLAX
     Indication: Acute myeloid leukaemia
     Dosage: 0 MG
     Route: 048
     Dates: start: 20231107, end: 20231119
  19. VENETOCLAX [Suspect]
     Active Substance: VENETOCLAX
     Indication: Acute myeloid leukaemia
     Dosage: 0 MG
     Route: 048
     Dates: start: 20230806, end: 20230825
  20. VENETOCLAX [Suspect]
     Active Substance: VENETOCLAX
     Indication: Acute myeloid leukaemia
     Dosage: 0 MG
     Route: 048
     Dates: start: 20230915, end: 20230924
  21. VENETOCLAX [Suspect]
     Active Substance: VENETOCLAX
     Indication: Acute myeloid leukaemia
     Dosage: 0 MG
     Route: 048
     Dates: start: 20231003, end: 20231022
  22. VENETOCLAX [Suspect]
     Active Substance: VENETOCLAX
     Indication: Acute myeloid leukaemia
     Route: 048
     Dates: start: 20240318
  23. PERFALGAN [Concomitant]
     Active Substance: ACETAMINOPHEN
     Indication: Product used for unknown indication
     Dosage: TIME INTERVAL: TOTAL: FREQUENCY TEXT: ONCE
     Route: 042
     Dates: start: 20230622, end: 20230622
  24. PANTOPRAZOLE SODIUM [Concomitant]
     Active Substance: PANTOPRAZOLE SODIUM
     Indication: Product used for unknown indication
     Dosage: FREQUENCY TEXT: DAILY
     Route: 048
     Dates: start: 20230609
  25. EUTHYROX [Concomitant]
     Active Substance: LEVOTHYROXINE SODIUM
     Indication: Product used for unknown indication
     Dosage: FREQUENCY TEXT: DAILY
     Route: 048
     Dates: start: 20230610
  26. ONDANSETRON [Concomitant]
     Active Substance: ONDANSETRON
     Indication: Drug therapy
     Dosage: TIME INTERVAL: AS NECESSARY: FREQUENCY TEXT: AS REQUIRED
     Dates: start: 20230619
  27. Paspertin [Concomitant]
     Indication: Product used for unknown indication
     Dosage: TIME INTERVAL: AS NECESSARY: FREQUENCY TEXT: AS REQUIRED
     Route: 048
     Dates: start: 20230616
  28. MYCOSTATIN [Concomitant]
     Active Substance: NYSTATIN
     Indication: Product used for unknown indication
     Route: 048
     Dates: start: 20230601, end: 20230629
  29. MYCOSTATIN [Concomitant]
     Active Substance: NYSTATIN
     Indication: Product used for unknown indication
     Route: 048
     Dates: start: 20240219, end: 20240226
  30. NAPROXEN [Concomitant]
     Active Substance: NAPROXEN
     Indication: Product used for unknown indication
     Dosage: FREQUENCY TEXT: DAILY
     Route: 048
     Dates: start: 20230614, end: 20230628
  31. TAZOBACTAM [Concomitant]
     Active Substance: TAZOBACTAM
     Indication: Product used for unknown indication
     Dosage: TIME INTERVAL: 0.33333333 DAYS
     Route: 042
     Dates: start: 20230623, end: 20230629
  32. ACETAMINOPHEN [Concomitant]
     Active Substance: ACETAMINOPHEN
     Indication: Product used for unknown indication
     Dosage: TIME INTERVAL: AS NECESSARY: FREQUENCY TEXT: AS REQUIRED
     Route: 048
     Dates: start: 20230622
  33. DEXIBUPROFEN [Concomitant]
     Active Substance: DEXIBUPROFEN
     Indication: Product used for unknown indication
     Dosage: TIME INTERVAL: 0.33333333 DAYS
     Route: 048
     Dates: start: 20230624, end: 20230629
  34. AZACITIDINE [Concomitant]
     Active Substance: AZACITIDINE
     Indication: Product used for unknown indication
     Dosage: STANDARD DOSE
     Dates: start: 20230828, end: 20230901
  35. AZACITIDINE [Concomitant]
     Active Substance: AZACITIDINE
     Indication: Product used for unknown indication
     Dosage: STANDARD DOSE
     Dates: start: 20230619, end: 20230623
  36. AZACITIDINE [Concomitant]
     Active Substance: AZACITIDINE
     Indication: Product used for unknown indication
     Dosage: STANDARD DOSE
     Dates: start: 20230717, end: 20230721
  37. AZACITIDINE [Concomitant]
     Active Substance: AZACITIDINE
     Indication: Product used for unknown indication
     Dates: start: 20230925, end: 20230929
  38. AZACITIDINE [Concomitant]
     Active Substance: AZACITIDINE
     Indication: Product used for unknown indication
     Dosage: STANDARD DOSE
     Dates: start: 20231023, end: 20231027
  39. AZACITIDINE [Concomitant]
     Active Substance: AZACITIDINE
     Indication: Product used for unknown indication
     Dosage: STANDARD DOSE
     Dates: start: 20231120, end: 20231124
  40. AZACITIDINE [Concomitant]
     Active Substance: AZACITIDINE
     Indication: Product used for unknown indication
     Dosage: STANDARD DOSE
     Dates: start: 20231218, end: 20231222
  41. AZACITIDINE [Concomitant]
     Active Substance: AZACITIDINE
     Indication: Product used for unknown indication
     Dosage: STANDARD DOSE
     Dates: start: 20240115, end: 20240119
  42. AZACITIDINE [Concomitant]
     Active Substance: AZACITIDINE
     Indication: Product used for unknown indication
     Dosage: STANDARD DOSING
     Dates: start: 20240318
  43. AZACITIDINE [Concomitant]
     Active Substance: AZACITIDINE
     Indication: Product used for unknown indication
     Dosage: STANDARD DOSING
     Dates: start: 20240212
  44. ZOLPIDEM TARTRATE [Concomitant]
     Active Substance: ZOLPIDEM TARTRATE
     Indication: Product used for unknown indication
     Dosage: TIME INTERVAL: AS NECESSARY: FREQUENCY TEXT: AS REQUIRED
     Route: 048
     Dates: start: 20230617
  45. HYDROXYUREA [Concomitant]
     Active Substance: HYDROXYUREA
     Indication: Product used for unknown indication
     Dosage: FREQUENCY TEXT: DAILY
     Route: 048
     Dates: start: 20230615, end: 20230619
  46. Motrim [Concomitant]
     Indication: Product used for unknown indication
     Route: 048
     Dates: start: 20230620, end: 20230623
  47. AMOXICOMP [Concomitant]
     Indication: Product used for unknown indication
     Dosage: FREQUENCY TEXT: DAILY
     Dates: start: 20240226, end: 20240303
  48. AMOXICOMP [Concomitant]
     Indication: Product used for unknown indication
     Dosage: FREQUENCY TEXT: DAILY
     Route: 048
     Dates: start: 20240215, end: 20240229
  49. TIMOLOL MALEATE\TRAVOPROST [Concomitant]
     Active Substance: TIMOLOL MALEATE\TRAVOPROST
     Indication: Product used for unknown indication
     Dosage: FREQUENCY TEXT: DAILY
     Route: 003
  50. LEVOFLOXACIN [Concomitant]
     Active Substance: LEVOFLOXACIN
     Indication: Product used for unknown indication
     Dosage: FREQUENCY TEXT: DAILY
     Route: 048
     Dates: start: 20230627, end: 20230629
  51. LEVOFLOXACIN [Concomitant]
     Active Substance: LEVOFLOXACIN
     Indication: Product used for unknown indication
     Dosage: TIME INTERVAL: 0.33333333 DAYS: FREQUENCY TEXT: DAILY?STOP DATE TEXT: PLANNED: 13 MAR 2024
     Dates: start: 20240304
  52. BISOPROLOL FUMARATE [Concomitant]
     Active Substance: BISOPROLOL FUMARATE
     Indication: Product used for unknown indication
     Dosage: FREQUENCY TEXT: 0.5-0-0?DOSE- 1.25MG
     Route: 048
     Dates: start: 20230801, end: 20240319
  53. BISOPROLOL FUMARATE [Concomitant]
     Active Substance: BISOPROLOL FUMARATE
     Indication: Product used for unknown indication
     Dosage: DOSE- 1.25MG
     Dates: start: 202403
  54. CALCIUM CARBONATE\CHOLECALCIFEROL [Concomitant]
     Active Substance: CALCIUM CARBONATE\CHOLECALCIFEROL
     Indication: Product used for unknown indication
     Dosage: FREQUENCY TEXT: DAILY
     Route: 048
  55. PREDNISOLONE [Concomitant]
     Active Substance: PREDNISOLONE
     Indication: Product used for unknown indication
     Dosage: FREQUENCY TEXT: DAILY
     Route: 048
     Dates: start: 20230701, end: 20230711
  56. PREDNISOLONE [Concomitant]
     Active Substance: PREDNISOLONE
     Indication: Product used for unknown indication
     Dosage: FREQUENCY TEXT: DAILY
     Route: 048
     Dates: start: 20230725, end: 20230805
  57. PREDNISOLONE [Concomitant]
     Active Substance: PREDNISOLONE
     Indication: Product used for unknown indication
     Dosage: FREQUENCY TEXT: DAILY
     Route: 048
     Dates: start: 20230807, end: 20230904
  58. IBANDRONIC ACID [Concomitant]
     Active Substance: IBANDRONIC ACID
     Indication: Product used for unknown indication
     Dosage: FREQUENCY TEXT: EVERY THREE MONTHS
     Route: 042
  59. BRINZOLAMIDE [Concomitant]
     Active Substance: BRINZOLAMIDE
     Indication: Product used for unknown indication
     Route: 003
  60. ENOXAPARIN SODIUM [Concomitant]
     Active Substance: ENOXAPARIN SODIUM
     Indication: Product used for unknown indication
     Dosage: FREQUENCY TEXT: DAILY
     Route: 058
     Dates: start: 20230609, end: 20230628
  61. CHOLECALCIFEROL [Concomitant]
     Active Substance: CHOLECALCIFEROL
     Indication: Product used for unknown indication
     Dosage: FREQUENCY TEXT: WEEKLY
     Route: 048
  62. Acemin [Concomitant]
     Indication: Product used for unknown indication
     Route: 048
     Dates: start: 20230801, end: 20240319
  63. ASPIRIN [Concomitant]
     Active Substance: ASPIRIN
     Indication: Product used for unknown indication
     Route: 048
     Dates: start: 20230801
  64. Ezeato [Concomitant]
     Indication: Product used for unknown indication
     Route: 048
  65. GRANULOCYTE COLONY-STIMULATING FACTOR NOS [Concomitant]
     Active Substance: GRANULOCYTE COLONY-STIMULATING FACTOR NOS
     Indication: Supportive care
     Dosage: FREQUENCY TEXT: DAILY
     Dates: start: 20240227, end: 20240228
  66. GRANULOCYTE COLONY-STIMULATING FACTOR NOS [Concomitant]
     Active Substance: GRANULOCYTE COLONY-STIMULATING FACTOR NOS
     Indication: Supportive care
     Dosage: FREQUENCY TEXT: DAILY
     Dates: start: 20240304, end: 20240305

REACTIONS (10)
  - Myocardial injury [Recovered/Resolved]
  - Febrile neutropenia [Recovered/Resolved]
  - Neutropenia [Recovered/Resolved]
  - C-reactive protein increased [Recovered/Resolved]
  - Neutropenia [Recovered/Resolved]
  - Noninfective sialoadenitis [Recovered/Resolved]
  - Dizziness [Recovered/Resolved]
  - Dizziness [Not Recovered/Not Resolved]
  - Heart rate increased [Not Recovered/Not Resolved]
  - Respiratory rate decreased [Not Recovered/Not Resolved]

NARRATIVE: CASE EVENT DATE: 20230805
